FAERS Safety Report 6120906-5 (Version None)
Quarter: 2009Q1

REPORT INFORMATION
  Report Type: 
  Country: None (occurrence: None)
  Receive Date: 20090317
  Receipt Date: 20090306
  Transmission Date: 20090719
  Serious: Yes (Hospitalization)
  Sender: FDA-Public Use
  Company Number: GB-TEVA-187335ISR

PATIENT
  Age: 67 Year
  Sex: Female

DRUGS (1)
  1. ACYCLOVIR [Suspect]
     Indication: FACIAL PALSY
     Route: 048

REACTIONS (1)
  - NEUROLOGICAL SYMPTOM [None]
